FAERS Safety Report 13376861 (Version 1)
Quarter: 2017Q1

REPORT INFORMATION
  Report Type: Spontaneous
  Country: US (occurrence: US)
  Receive Date: 20170328
  Receipt Date: 20170328
  Transmission Date: 20170429
  Serious: Yes (Death, Hospitalization)
  Sender: FDA-Public Use
  Company Number: None

PATIENT
  Age: 77 Year
  Sex: Male
  Weight: 78.75 kg

DRUGS (3)
  1. HUMALOG [Concomitant]
     Active Substance: INSULIN LISPRO
  2. LANTUS [Concomitant]
     Active Substance: INSULIN GLARGINE
  3. XARELTO [Suspect]
     Active Substance: RIVAROXABAN
     Indication: ARTERIAL REPAIR
     Dosage: ?          QUANTITY:1 TABLET(S);?
     Route: 048

REACTIONS (5)
  - Cerebrovascular accident [None]
  - Internal haemorrhage [None]
  - Cardiac failure congestive [None]
  - General physical health deterioration [None]
  - Blood test abnormal [None]

NARRATIVE: CASE EVENT DATE: 20160815
